FAERS Safety Report 10206110 (Version 1)
Quarter: 2014Q2

REPORT INFORMATION
  Report Type: Spontaneous
  Country: US (occurrence: US)
  Receive Date: 20140530
  Receipt Date: 20140530
  Transmission Date: 20141212
  Serious: No
  Sender: FDA-Public Use
  Company Number: US-PFIZER INC-2014148739

PATIENT
  Age: 36 Year
  Sex: Male
  Weight: 139 kg

DRUGS (7)
  1. GABAPENTIN [Suspect]
     Indication: NEURALGIA
     Dosage: 50 MG, UNK
     Dates: start: 2007
  2. GABAPENTIN [Suspect]
     Indication: NERVE INJURY
     Dosage: 1200 MG, 3X/DAY
     Dates: start: 2014
  3. GABAPENTIN [Suspect]
     Dosage: UNK
  4. EFFEXOR XR [Concomitant]
     Dosage: 225 MG, DAILY
     Dates: start: 2005
  5. TRAZODONE [Concomitant]
     Dosage: 300 MG, UNK
  6. ROBAXIN [Concomitant]
     Dosage: 750 MG,EVERY 8 HOURS
  7. SEROQUEL [Concomitant]
     Dosage: 200 MG, UNK

REACTIONS (1)
  - Drug ineffective [Not Recovered/Not Resolved]
